FAERS Safety Report 9226048 (Version 1)
Quarter: 2013Q2

REPORT INFORMATION
  Report Type: Other
  Country: IT (occurrence: IT)
  Receive Date: 20130411
  Receipt Date: 20130411
  Transmission Date: 20140414
  Serious: Yes (Hospitalization)
  Sender: FDA-Public Use
  Company Number: IT-ACTAVIS-2013-06187

PATIENT
  Age: 7 Year
  Sex: Male
  Weight: 40 kg

DRUGS (2)
  1. PARACETAMOL [Suspect]
     Indication: PYREXIA
     Dosage: 20 ML, DAILY
     Route: 048
     Dates: start: 20130127, end: 20130128
  2. IBUPROFEN [Suspect]
     Indication: PYREXIA
     Dosage: 15 ML, DAILY
     Route: 048
     Dates: start: 20130128, end: 20130128

REACTIONS (4)
  - Erythema [Recovered/Resolved]
  - Eyelid oedema [Recovered/Resolved]
  - Lip oedema [Recovered/Resolved]
  - Pruritus generalised [Recovered/Resolved]
